FAERS Safety Report 21477192 (Version 1)
Quarter: 2022Q4

REPORT INFORMATION
  Report Type: Spontaneous
  Country: US (occurrence: US)
  Receive Date: 20221019
  Receipt Date: 20221019
  Transmission Date: 20230113
  Serious: No
  Sender: FDA-Public Use
  Company Number: US-APOTEX-2022AP009999

PATIENT
  Sex: Female

DRUGS (3)
  1. AZELASTINE HYDROCHLORIDE [Suspect]
     Active Substance: AZELASTINE HYDROCHLORIDE
     Indication: Sinusitis
     Dosage: 4 DOSAGE FORM, BID (2 SPRAYS IN EACH NOSTRIL, BID)
     Route: 045
     Dates: start: 20220606
  2. AZELASTINE HYDROCHLORIDE [Suspect]
     Active Substance: AZELASTINE HYDROCHLORIDE
     Dosage: 2 DOSAGE FORM, BID (1 SPRAY IN EACH NOSTRIL, BID)
     Route: 045
  3. SALINE NASAL MIST [Concomitant]
     Indication: Sinusitis
     Dosage: UNK
     Route: 065

REACTIONS (4)
  - Decreased appetite [Recovered/Resolved]
  - Feeding disorder [Recovered/Resolved]
  - Wrong technique in product usage process [Unknown]
  - Drug ineffective [Unknown]
